FAERS Safety Report 8548681-5 (Version None)
Quarter: 2012Q3

REPORT INFORMATION
  Report Type: 
  Country: None (occurrence: None)
  Receive Date: 20120730
  Receipt Date: 20120719
  Transmission Date: 20120928
  Serious: Yes (Other)
  Sender: FDA-Public Use
  Company Number: JP-VERTEX PHARMACEUTICALS INC.-AE-2012-010799

PATIENT
  Age: 68 Year
  Sex: Female

DRUGS (6)
  1. ALLEGRA [Concomitant]
     Route: 048
     Dates: start: 20120518, end: 20120618
  2. EPINASTINE HYDROCHLORIDE [Concomitant]
     Route: 048
  3. TELAVIC (TELAPREVIR) [Suspect]
     Indication: HEPATITIS C
     Route: 048
     Dates: start: 20120514, end: 20120614
  4. RIBAVIRIN [Concomitant]
     Route: 048
     Dates: start: 20120514, end: 20120618
  5. URSO 250 [Concomitant]
     Route: 048
  6. PEGINTERFERON ALFA-2B [Concomitant]
     Route: 058
     Dates: start: 20120514, end: 20120618

REACTIONS (1)
  - MALAISE [None]
